FAERS Safety Report 24921717 (Version 1)
Quarter: 2025Q1

REPORT INFORMATION
  Report Type: Spontaneous
  Country: JP (occurrence: JP)
  Receive Date: 20250204
  Receipt Date: 20250204
  Transmission Date: 20250409
  Serious: Yes (Hospitalization, Other)
  Sender: PURACAP PHARMACEUTICAL LLC
  Company Number: JP-PURACAP-JP-2025EPCLIT00079

PATIENT
  Age: 58 Year
  Sex: Male

DRUGS (11)
  1. NAPROXEN SODIUM [Suspect]
     Active Substance: NAPROXEN SODIUM
     Indication: Product used for unknown indication
     Route: 065
  2. REGORAFENIB [Suspect]
     Active Substance: REGORAFENIB
     Indication: Rectal cancer
     Route: 065
  3. ACETAMINOPHEN [Suspect]
     Active Substance: ACETAMINOPHEN
     Indication: Product used for unknown indication
     Route: 065
  4. LANSOPRAZOLE [Concomitant]
     Active Substance: LANSOPRAZOLE
     Indication: Product used for unknown indication
     Route: 065
  5. CAPECITABINE [Concomitant]
     Active Substance: CAPECITABINE
     Route: 065
  6. OXALIPLATIN [Concomitant]
     Active Substance: OXALIPLATIN
     Route: 065
  7. BEVACIZUMAB [Concomitant]
     Active Substance: BEVACIZUMAB
     Route: 065
  8. TIPIRACIL [Concomitant]
     Active Substance: TIPIRACIL
     Route: 065
  9. TRIFLURIDINE [Concomitant]
     Active Substance: TRIFLURIDINE
     Route: 065
  10. TEGAFUR [Concomitant]
     Active Substance: TEGAFUR
     Route: 065
  11. URACIL [Concomitant]
     Active Substance: URACIL
     Route: 065

REACTIONS (1)
  - Gastrointestinal perforation [Recovered/Resolved]
